FAERS Safety Report 25919032 (Version 2)
Quarter: 2025Q4

REPORT INFORMATION
  Report Type: Report from Study
  Country: US (occurrence: US)
  Receive Date: 20251014
  Receipt Date: 20251029
  Transmission Date: 20260117
  Serious: Yes (Hospitalization, Other)
  Sender: INCYTE
  Company Number: US-INCYTE CORPORATION-2025IN010934

PATIENT
  Age: 56 Year
  Weight: 98.7 kg

DRUGS (6)
  1. JAKAFI [Suspect]
     Active Substance: RUXOLITINIB
     Indication: Chronic graft versus host disease in skin
     Dosage: 5 MILLIGRAM, BID
     Route: 065
  2. JAKAFI [Suspect]
     Active Substance: RUXOLITINIB
     Dosage: 10 MILLIGRAM, BID
     Route: 065
  3. AXATILIMAB [Suspect]
     Active Substance: AXATILIMAB
     Indication: Chronic graft versus host disease in skin
     Dosage: UNK
     Route: 065
  4. AXATILIMAB [Suspect]
     Active Substance: AXATILIMAB
     Dosage: C1D15
     Route: 065
  5. AXATILIMAB [Suspect]
     Active Substance: AXATILIMAB
     Dosage: C2D1 AT A REDUCED DOSE
     Route: 065
  6. AXATILIMAB [Suspect]
     Active Substance: AXATILIMAB
     Dosage: C2D15
     Route: 065

REACTIONS (4)
  - Immunosuppression [Unknown]
  - Legionella infection [Recovered/Resolved]
  - Pneumonia legionella [Recovered/Resolved]
  - Epstein-Barr virus infection [Unknown]
